FAERS Safety Report 23177557 (Version 1)
Quarter: 2023Q4

REPORT INFORMATION
  Report Type: Spontaneous
  Country: FR (occurrence: FR)
  Receive Date: 20231113
  Receipt Date: 20231113
  Transmission Date: 20240110
  Serious: Yes (Hospitalization, Other)
  Sender: FDA-Public Use
  Company Number: None

PATIENT

DRUGS (4)
  1. BUPRENORPHINE [Interacting]
     Active Substance: BUPRENORPHINE
     Indication: Drug dependence
     Dosage: 10 MILLIGRAM, QD
     Route: 060
     Dates: start: 202308
  2. SERTRALINE HYDROCHLORIDE [Interacting]
     Active Substance: SERTRALINE HYDROCHLORIDE
     Indication: Product used for unknown indication
     Dosage: 100 MILLIGRAM, QD
     Route: 048
     Dates: start: 202301, end: 20231012
  3. NICOPATCH [Concomitant]
     Active Substance: NICOTINE
     Indication: Product used for unknown indication
     Dosage: 14 MILLIGRAM, QD
     Route: 062
  4. DITROPAN [Concomitant]
     Active Substance: OXYBUTYNIN CHLORIDE
     Indication: Product used for unknown indication
     Dosage: UNK
     Route: 065

REACTIONS (3)
  - Tonic convulsion [Recovered/Resolved]
  - Myoclonus [Recovered/Resolved]
  - Hyperhidrosis [Recovered/Resolved]

NARRATIVE: CASE EVENT DATE: 20230101
